FAERS Safety Report 9931805 (Version 2)
Quarter: 2014Q2

REPORT INFORMATION
  Report Type: Spontaneous
  Country: IT (occurrence: None)
  Receive Date: 20140226
  Receipt Date: 20140627
  Transmission Date: 20141212
  Serious: Yes (Hospitalization)
  Sender: FDA-Public Use
  Company Number: AXC-2014-000120

PATIENT
  Age: 75 Year
  Sex: Male

DRUGS (15)
  1. GLIBENCLAMIDE W/METFORMIN [Suspect]
     Indication: PRODUCT USED FOR UNKNOWN INDICATION
     Route: 048
  2. ASPIRIN [Suspect]
     Indication: PRODUCT USED FOR UNKNOWN INDICATION
     Route: 048
  3. RAMIPRIL (RAMIPRIL) [Suspect]
     Indication: CARDIAC FAILURE
     Route: 048
  4. CARVEDILOL (CARVEDILOL) [Suspect]
     Indication: CARDIAC FAILURE
     Route: 048
  5. ISOSORBIDE MONONITRATE [Suspect]
     Indication: CARDIAC FAILURE
     Route: 048
  6. LOSARTAN POTASSIUM (LOSARTAN POTASSIUM) [Suspect]
     Indication: PRODUCT USED FOR UNKNOWN INDICATION
     Route: 048
  7. AMLODIPINE (AMLODIPINE) [Suspect]
     Indication: PRODUCT USED FOR UNKNOWN INDICATION
     Route: 048
  8. FUROSEMIDE (FUROSEMIDE) [Suspect]
     Indication: CARDIAC FAILURE
     Route: 048
  9. DOXAZOSIN MESILATE [Suspect]
     Indication: PRODUCT USED FOR UNKNOWN INDICATION
     Route: 048
  10. GLYCERYL TRINITRATE [Suspect]
     Indication: PRODUCT USED FOR UNKNOWN INDICATION
     Route: 062
  11. CLOPIDOGREL BISULFATE [Suspect]
     Indication: PRODUCT USED FOR UNKNOWN INDICATION
     Route: 048
  12. IVABRADINE HYDROCHLORIDE [Suspect]
     Indication: PRODUCT USED FOR UNKNOWN INDICATION
     Route: 048
  13. RANOLAZINE [Suspect]
     Indication: PRODUCT USED FOR UNKNOWN INDICATION
     Route: 048
  14. NAPHAZOLINE (NAPHAZOLINE) [Concomitant]
  15. URSODEOXYCHOLIC ACID [Suspect]
     Indication: PRODUCT USED FOR UNKNOWN INDICATION
     Route: 048

REACTIONS (7)
  - Photopsia [None]
  - Hallucination, visual [None]
  - Cardiac failure [None]
  - Oxygen saturation decreased [None]
  - Poor quality sleep [None]
  - Visual impairment [None]
  - Photopsia [None]
